FAERS Safety Report 9231931 (Version 3)
Quarter: 2013Q3

REPORT INFORMATION
  Report Type: Report from Study
  Country: US (occurrence: US)
  Receive Date: 20130415
  Receipt Date: 20130729
  Transmission Date: 20140515
  Serious: Yes (Other)
  Sender: FDA-Public Use
  Company Number: US-ELI_LILLY_AND_COMPANY-US201207005970

PATIENT
  Age: 73 Year
  Sex: Female

DRUGS (4)
  1. TERIPARATIDE [Suspect]
     Indication: OSTEOPOROSIS
     Dosage: 20 UG, QD
     Route: 058
     Dates: start: 201102
  2. TERIPARATIDE [Suspect]
     Dosage: 20 UG, QD
     Route: 058
  3. TERIPARATIDE [Suspect]
     Dosage: 20 UG, QD
     Route: 058
  4. TERIPARATIDE [Suspect]
     Dosage: 20 UG, QD
     Route: 058

REACTIONS (8)
  - Cervical radiculopathy [Recovered/Resolved]
  - Injection site injury [Unknown]
  - Inflammation [Recovering/Resolving]
  - Skin disorder [Unknown]
  - Anxiety [Unknown]
  - Incorrect drug administration duration [Unknown]
  - Cough [Unknown]
  - Pain [Unknown]
